FAERS Safety Report 17909438 (Version 1)
Quarter: 2020Q2

REPORT INFORMATION
  Report Type: Spontaneous
  Country: AT (occurrence: AT)
  Receive Date: 20200617
  Receipt Date: 20200617
  Transmission Date: 20200714
  Serious: Yes (Other)
  Sender: FDA-Public Use
  Company Number: AT-MYLANLABS-2020M1057064

PATIENT
  Age: 8 Decade
  Sex: Male

DRUGS (2)
  1. MITOMYCIN. [Suspect]
     Active Substance: MITOMYCIN
     Indication: URETHRAL STENOSIS
     Dosage: 1.6 MILLIGRAM LATER RECEIVED TWO MORE INSTILLATIONS DUE TO RECURRENCE OF THE STRICTURE
     Route: 026
     Dates: start: 2016
  2. MITOMYCIN. [Suspect]
     Active Substance: MITOMYCIN
     Indication: LICHEN SCLEROSUS

REACTIONS (2)
  - Off label use [Recovered/Resolved]
  - Urethral fistula [Recovered/Resolved]
